FAERS Safety Report 21787619 (Version 1)
Quarter: 2022Q4

REPORT INFORMATION
  Report Type: Spontaneous
  Country: ES (occurrence: None)
  Receive Date: 20221228
  Receipt Date: 20221228
  Transmission Date: 20230113
  Serious: Yes (Other)
  Sender: FDA-Public Use
  Company Number: ES-ROCHE-3250514

PATIENT
  Age: 70 Year
  Sex: Male
  Weight: 89 kg

DRUGS (2)
  1. ATEZOLIZUMAB [Suspect]
     Active Substance: ATEZOLIZUMAB
     Indication: Hepatocellular carcinoma
     Route: 065
  2. BEVACIZUMAB [Suspect]
     Active Substance: BEVACIZUMAB
     Indication: Hepatocellular carcinoma
     Route: 065

REACTIONS (3)
  - Hepatic encephalopathy [Unknown]
  - Hypertension [Unknown]
  - Therapy partial responder [Unknown]
